FAERS Safety Report 8116735-3 (Version None)
Quarter: 2012Q1

REPORT INFORMATION
  Report Type: 
  Country: None (occurrence: None)
  Receive Date: 20120206
  Receipt Date: 20120129
  Transmission Date: 20120608
  Serious: Yes (Other)
  Sender: FDA-Public Use
  Company Number: PHHY2012AT008305

PATIENT
  Age: 34 Year
  Sex: Male

DRUGS (35)
  1. TRILEPTAL [Suspect]
     Dosage: 900 MG, UNK
     Dates: start: 20080101
  2. SEROQUEL [Suspect]
     Dosage: 150 MG, UNK
  3. LORAZEPAM [Suspect]
     Dosage: 12.5 MG, UNK
     Dates: start: 20110906
  4. TRILEPTAL [Suspect]
     Dosage: 900 MG, UNK
     Dates: start: 20110903, end: 20110905
  5. TRILEPTAL [Suspect]
     Dosage: UNK UKN, UNK
     Dates: end: 20110928
  6. LORAZEPAM [Suspect]
     Dosage: 11.25 MG, UNK
     Dates: start: 20110905
  7. LORAZEPAM [Suspect]
     Dosage: 8.75 MG, UNK
     Dates: start: 20110909, end: 20110911
  8. LORAZEPAM [Suspect]
     Dosage: 3.75 MG, UNK
     Dates: start: 20110916
  9. LORAZEPAM [Suspect]
     Dosage: 2 MG, 2 AMPOULES, IN THE SEIZURE
     Route: 042
  10. SOMNUBENE [Concomitant]
     Dosage: 10 MG, DAILY
  11. OXAZEPAM [Concomitant]
     Dosage: 500 MG, DAILY
  12. TRILEPTAL [Suspect]
     Dosage: 1200 MG, UNK
     Dates: start: 20110906, end: 20110921
  13. TRILEPTAL [Suspect]
     Dosage: 1800 MG, UNK
     Dates: start: 20110923, end: 20110926
  14. LORAZEPAM [Suspect]
     Dosage: 8.25 MG, UNK
     Dates: start: 20110912
  15. METHADONE HCL [Concomitant]
     Dosage: 70 MG, UNK
     Dates: start: 20110903
  16. MAGNOSOLV [Concomitant]
     Dosage: 1 DF, UNK
     Dates: start: 20110917, end: 20110924
  17. HEROIN [Concomitant]
     Dosage: SMOKING 2XMONTHS
  18. VENLAFAXINE HCL [Suspect]
     Dosage: 75 MG, UNK
     Dates: start: 20110906, end: 20110926
  19. LORAZEPAM [Suspect]
     Dosage: 15 MG, UNK
     Dates: start: 20110904
  20. LORAZEPAM [Suspect]
     Dosage: 1.25 MG, UNK
     Dates: start: 20110919, end: 20110920
  21. TRILEPTAL [Suspect]
     Dosage: 1500 MG, UNK
     Dates: start: 20110922
  22. SEROQUEL [Suspect]
     Dosage: 75 MG, UNK
  23. SEROQUEL [Suspect]
     Dosage: 200 MG, UNK
  24. SEROQUEL [Suspect]
     Dosage: 600 MG, DAILY
  25. LORAZEPAM [Suspect]
     Dosage: 10 MG, UNK
     Dates: start: 20110907, end: 20110908
  26. AMPHOTERICIN B [Concomitant]
     Dosage: 4 DF, UNK
     Dates: start: 20110909, end: 20110921
  27. ALCOHOL [Concomitant]
     Dosage: 5-6 BEER, 1/2 LITER WODKA; 10 BITTERS DAILY
  28. SEROQUEL [Suspect]
     Dosage: 250 MG, UNK
  29. LORAZEPAM [Suspect]
     Dosage: 12.5 MG, UNK
     Dates: start: 20110903
  30. LORAZEPAM [Suspect]
     Dosage: 5 MG, UNK
     Dates: start: 20110915
  31. NEXIUM [Concomitant]
     Dosage: 40 MG, DAILY
     Dates: start: 20110903
  32. LORAZEPAM [Suspect]
     Dosage: 6.25 MG, UNK
     Dates: start: 20110913, end: 20110914
  33. LORAZEPAM [Suspect]
     Dosage: 2.5 MG, UNK
     Dates: start: 20110917, end: 20110918
  34. VENLAFAXINE HCL [Suspect]
     Dosage: 150 MG, DAILY
  35. ESCITALOPRAM [Concomitant]
     Dosage: UNK UKN, UNK
     Dates: start: 20080101

REACTIONS (4)
  - GRAND MAL CONVULSION [None]
  - ANTICONVULSANT DRUG LEVEL INCREASED [None]
  - COMA [None]
  - DRUG WITHDRAWAL CONVULSIONS [None]
